FAERS Safety Report 10831695 (Version 1)
Quarter: 2015Q1

REPORT INFORMATION
  Report Type: Report from Study
  Country: US (occurrence: US)
  Receive Date: 20150219
  Receipt Date: 20150219
  Transmission Date: 20150721
  Serious: No
  Sender: FDA-Public Use
  Company Number: US-ABBVIE-14P-163-1194222-00

PATIENT
  Sex: Male
  Weight: 87.62 kg

DRUGS (4)
  1. IRON [Concomitant]
     Active Substance: IRON
     Indication: VITAMIN SUPPLEMENTATION
  2. FLORAJEN [Concomitant]
     Indication: VITAMIN SUPPLEMENTATION
  3. LIALDA [Concomitant]
     Active Substance: MESALAMINE
     Indication: COLITIS ULCERATIVE
  4. HUMIRA [Suspect]
     Active Substance: ADALIMUMAB
     Indication: COLITIS ULCERATIVE
     Route: 058
     Dates: start: 201311

REACTIONS (4)
  - Clostridium difficile infection [Not Recovered/Not Resolved]
  - Diarrhoea [Not Recovered/Not Resolved]
  - Abdominal pain [Not Recovered/Not Resolved]
  - Drug ineffective [Not Recovered/Not Resolved]

NARRATIVE: CASE EVENT DATE: 201311
